FAERS Safety Report 20838861 (Version 1)
Quarter: 2022Q2

REPORT INFORMATION
  Report Type: Report from Study
  Country: BR (occurrence: BR)
  Receive Date: 20220517
  Receipt Date: 20220517
  Transmission Date: 20220721
  Serious: Yes (Hospitalization, Other)
  Sender: FDA-Public Use
  Company Number: BR-NOVARTISPH-NVSC2022BR112018

PATIENT
  Age: 82 Year
  Sex: Male

DRUGS (2)
  1. INDACATEROL MALEATE [Suspect]
     Active Substance: INDACATEROL MALEATE
     Indication: Chronic obstructive pulmonary disease
     Dosage: UNK (APPROXIMATELY 5 TO 6 YEARS)
     Route: 055
  2. GLYCOPYRROLATE [Suspect]
     Active Substance: GLYCOPYRROLATE
     Indication: Product used for unknown indication
     Dosage: UNK, (APPROXIMATELY 3 TO 4 YEARS)
     Route: 065

REACTIONS (9)
  - Pulmonary congestion [Recovering/Resolving]
  - Lacunar stroke [Recovering/Resolving]
  - Malaise [Recovering/Resolving]
  - Illness [Recovering/Resolving]
  - Granular cell tumour [Recovering/Resolving]
  - Nodule [Recovering/Resolving]
  - Renal function test abnormal [Recovering/Resolving]
  - Feeling abnormal [Recovering/Resolving]
  - Product availability issue [Unknown]

NARRATIVE: CASE EVENT DATE: 20200201
